FAERS Safety Report 17914506 (Version 14)
Quarter: 2025Q1

REPORT INFORMATION
  Report Type: Spontaneous
  Country: ES (occurrence: ES)
  Receive Date: 20200619
  Receipt Date: 20250320
  Transmission Date: 20250409
  Serious: Yes (Hospitalization, Other)
  Sender: AUROBINDO
  Company Number: ES-AEMPS-641088

PATIENT
  Age: 39 Year
  Sex: Male
  Weight: 68 kg

DRUGS (22)
  1. PIPERACILLIN AND TAZOBACTAM [Suspect]
     Active Substance: PIPERACILLIN SODIUM\TAZOBACTAM SODIUM
     Indication: Respiratory tract infection
     Dosage: 4 GRAM, 3 TIMES A DAY
     Route: 065
     Dates: start: 20200506
  2. PIPERACILLIN AND TAZOBACTAM [Suspect]
     Active Substance: PIPERACILLIN SODIUM\TAZOBACTAM SODIUM
     Indication: Pyrexia
     Dosage: 4 GRAM, 3 TIMES A DAY
     Route: 065
     Dates: start: 20200507, end: 20200526
  3. PIPERACILLIN AND TAZOBACTAM [Suspect]
     Active Substance: PIPERACILLIN SODIUM\TAZOBACTAM SODIUM
     Dosage: 4 GRAM, 3 TIMES A DAY
     Route: 065
     Dates: end: 20200528
  4. KALYDECO [Suspect]
     Active Substance: IVACAFTOR
     Indication: Cystic fibrosis
     Route: 048
     Dates: start: 20200518, end: 20200518
  5. KALYDECO [Suspect]
     Active Substance: IVACAFTOR
     Route: 048
     Dates: start: 20200519, end: 20200526
  6. KALYDECO [Suspect]
     Active Substance: IVACAFTOR
     Route: 065
     Dates: start: 20200518, end: 20200527
  7. KALYDECO [Suspect]
     Active Substance: IVACAFTOR
     Route: 065
     Dates: start: 20200527, end: 20200527
  8. METAMIZOL [Suspect]
     Active Substance: METAMIZOLE SODIUM
     Indication: Pyrexia
     Route: 065
     Dates: start: 20200526, end: 20200526
  9. METAMIZOL [Suspect]
     Active Substance: METAMIZOLE SODIUM
     Indication: Abdominal pain
     Dosage: 2 GRAM, ONCE A DAY
     Route: 065
     Dates: start: 20200526, end: 20200527
  10. METAMIZOL [Suspect]
     Active Substance: METAMIZOLE SODIUM
     Indication: Gastrointestinal disorder
  11. METAMIZOLE MAGNESIUM [Suspect]
     Active Substance: METAMIZOLE MAGNESIUM
     Indication: Pyrexia
     Route: 048
     Dates: start: 20200526, end: 20200527
  12. METAMIZOLE MAGNESIUM [Suspect]
     Active Substance: METAMIZOLE MAGNESIUM
     Indication: Abdominal pain
  13. METAMIZOLE MAGNESIUM [Suspect]
     Active Substance: METAMIZOLE MAGNESIUM
     Indication: Gastrointestinal disorder
  14. METAMIZOLE MAGNESIUM [Suspect]
     Active Substance: METAMIZOLE MAGNESIUM
     Indication: Pyrexia
     Route: 065
  15. METAMIZOLE MAGNESIUM [Suspect]
     Active Substance: METAMIZOLE MAGNESIUM
     Indication: Abdominal pain
  16. TRIKAFTA [Suspect]
     Active Substance: ELEXACAFTOR\IVACAFTOR\TEZACAFTOR
     Indication: Cystic fibrosis
     Route: 048
     Dates: start: 20200518, end: 20200526
  17. TRIKAFTA [Suspect]
     Active Substance: ELEXACAFTOR\IVACAFTOR\TEZACAFTOR
     Route: 048
     Dates: start: 20200518, end: 20200518
  18. TRIKAFTA [Suspect]
     Active Substance: ELEXACAFTOR\IVACAFTOR\TEZACAFTOR
     Route: 065
     Dates: start: 20200518, end: 20200527
  19. TRIKAFTA [Suspect]
     Active Substance: ELEXACAFTOR\IVACAFTOR\TEZACAFTOR
     Route: 048
     Dates: start: 20200519, end: 20200526
  20. TRIKAFTA [Suspect]
     Active Substance: ELEXACAFTOR\IVACAFTOR\TEZACAFTOR
     Route: 065
     Dates: start: 20200527, end: 20200527
  21. ELEXACAFTOR\IVACAFTOR\TEZACAFTOR [Suspect]
     Active Substance: ELEXACAFTOR\IVACAFTOR\TEZACAFTOR
     Indication: Cystic fibrosis
     Route: 065
     Dates: start: 20200518, end: 20200518
  22. ELEXACAFTOR\IVACAFTOR\TEZACAFTOR [Suspect]
     Active Substance: ELEXACAFTOR\IVACAFTOR\TEZACAFTOR
     Route: 065
     Dates: start: 20200519, end: 20200519

REACTIONS (12)
  - Acute respiratory failure [Recovered/Resolved]
  - Neutropenia [Recovered/Resolved]
  - Toxic epidermal necrolysis [Recovered/Resolved]
  - Lymphopenia [Recovered/Resolved]
  - Hypotension [Recovered/Resolved]
  - Pneumonia [Recovered/Resolved]
  - Blood bilirubin increased [Recovering/Resolving]
  - Generalised oedema [Unknown]
  - Thrombocytopenia [Recovered/Resolved]
  - Hyperbilirubinaemia [Recovered/Resolved]
  - Haematology test abnormal [Recovering/Resolving]
  - Rash erythematous [Recovering/Resolving]

NARRATIVE: CASE EVENT DATE: 20200101
